FAERS Safety Report 5714910-6 (Version None)
Quarter: 2008Q2

REPORT INFORMATION
  Report Type: 
  Country: None (occurrence: None)
  Receive Date: 20080423
  Receipt Date: 20071001
  Transmission Date: 20081010
  Serious: No
  Sender: FDA-Public Use
  Company Number: US-BAYER-US-2007-035267

PATIENT
  Age: 45 Year
  Sex: Female
  Weight: 111 kg

DRUGS (5)
  1. LEUKINE [Suspect]
     Indication: BREAST CANCER
     Route: 058
     Dates: start: 20070124, end: 20070125
  2. CLONIDINE HCL [Concomitant]
     Dosage: UNIT DOSE: 0.2 MG
     Route: 048
  3. METOPROLOL TARTRATE [Concomitant]
     Dosage: UNIT DOSE: 50 MG
     Route: 048
  4. DOXORUBICIN HCL [Concomitant]
     Route: 042
     Dates: start: 20070124
  5. CYTOXAN [Concomitant]
     Route: 042
     Dates: start: 20070124

REACTIONS (1)
  - PAIN [None]
